FAERS Safety Report 14255716 (Version 1)
Quarter: 2017Q4

REPORT INFORMATION
  Report Type: Spontaneous
  Country: US (occurrence: US)
  Receive Date: 20171206
  Receipt Date: 20171206
  Transmission Date: 20180321
  Serious: No
  Sender: FDA-Public Use
  Company Number: PHEH2017US039202

PATIENT
  Age: 17 Year
  Sex: Male

DRUGS (1)
  1. AFINITOR [Suspect]
     Active Substance: EVEROLIMUS
     Indication: ASTROCYTOMA, LOW GRADE
     Dosage: UNK
     Route: 048
     Dates: end: 20170830

REACTIONS (2)
  - Hypercholesterolaemia [Recovering/Resolving]
  - Hyperglycaemia [Recovered/Resolved]
